FAERS Safety Report 9353580 (Version 4)
Quarter: 2013Q3

REPORT INFORMATION
  Report Type: Spontaneous
  Country: US (occurrence: US)
  Receive Date: 20130618
  Receipt Date: 20130807
  Transmission Date: 20140515
  Serious: Yes (Hospitalization)
  Sender: FDA-Public Use
  Company Number: US-PFIZER INC-2013179362

PATIENT
  Age: 72 Year
  Sex: Male
  Weight: 112 kg

DRUGS (9)
  1. ZOSYN [Suspect]
     Indication: STAPHYLOCOCCUS TEST POSITIVE
     Dosage: UNK
     Route: 042
     Dates: start: 20130608, end: 20130609
  2. VANCOMYCIN HCL [Suspect]
     Indication: STAPHYLOCOCCUS TEST POSITIVE
     Dosage: UNK
     Route: 042
     Dates: start: 20130608, end: 20130609
  3. KIOVIG [Suspect]
     Indication: WALDENSTROM^S MACROGLOBULINAEMIA
     Dosage: 100 MG, SINGLE
     Route: 042
     Dates: start: 20130607, end: 20130607
  4. KIOVIG [Suspect]
     Dosage: 1 IN 1 ONCE
     Dates: start: 201010, end: 201010
  5. KIOVIG [Suspect]
     Dosage: 2 IN 1 TOTAL
     Route: 042
     Dates: start: 201102, end: 201102
  6. LANTUS [Concomitant]
     Indication: TYPE 2 DIABETES MELLITUS
     Dosage: UNK
     Route: 058
  7. INSULIN [Concomitant]
     Indication: TYPE 2 DIABETES MELLITUS
     Dosage: UNK
     Route: 058
  8. METOPROLOL [Concomitant]
     Indication: PRODUCT USED FOR UNKNOWN INDICATION
     Dosage: UNK
     Route: 048
  9. LISINOPRIL [Concomitant]
     Indication: PRODUCT USED FOR UNKNOWN INDICATION
     Dosage: UNK
     Route: 048

REACTIONS (3)
  - Pyrexia [Recovered/Resolved]
  - Confusional state [Unknown]
  - Fatigue [Unknown]
